FAERS Safety Report 7917192-X (Version None)
Quarter: 2011Q4

REPORT INFORMATION
  Report Type: 
  Country: None (occurrence: None)
  Receive Date: 20111116
  Receipt Date: 20111114
  Transmission Date: 20120403
  Serious: Yes (Hospitalization)
  Sender: FDA-Public Use
  Company Number: IT-BAYER-2011-110212

PATIENT
  Age: 82 Year
  Sex: Female

DRUGS (6)
  1. TICLID [Suspect]
     Indication: PROPHYLAXIS
     Dosage: DAILY DOSE 1 DF
     Route: 048
     Dates: start: 20100101, end: 20111011
  2. ENALAPRIL MALEATE [Concomitant]
     Dosage: DAILY DOSE 10 MG
     Route: 048
  3. ASPIRIN [Suspect]
     Indication: PROPHYLAXIS
     Dosage: 100 MG, QD
     Route: 048
     Dates: start: 20100101, end: 20111011
  4. ESOPRAL [Concomitant]
     Dosage: DAILY DOSE 1 DF
  5. LYRICA [Concomitant]
     Dosage: DAILY DOSE 75 MG
     Route: 048
  6. ISOPTIN [Concomitant]
     Dosage: DAILY DOSE 80 MG
     Route: 048

REACTIONS (2)
  - GASTRITIS [None]
  - IRON DEFICIENCY ANAEMIA [None]
